FAERS Safety Report 4647323-9 (Version None)
Quarter: 2005Q2

REPORT INFORMATION
  Report Type: 
  Country: None (occurrence: None)
  Receive Date: 20050428
  Receipt Date: 20050418
  Transmission Date: 20051028
  Serious: Yes (Other)
  Sender: FDA-Public Use
  Company Number: FR-BRISTOL-MYERS SQUIBB COMPANY-12938452

PATIENT
  Age: 51 Year
  Sex: Male
  Weight: 89 kg

DRUGS (10)
  1. REYATAZ [Suspect]
     Indication: HIV INFECTION
     Route: 048
     Dates: start: 20050216, end: 20050218
  2. NORVIR [Suspect]
     Indication: HIV INFECTION
     Route: 048
     Dates: start: 20050216, end: 20050218
  3. EPIVIR [Concomitant]
     Indication: HIV INFECTION
     Dosage: INTERRUPTED 18-FEB-2005, RESTARTED 23-MAR-2005
     Route: 048
     Dates: start: 20050204
  4. VIRAMUNE [Concomitant]
     Indication: HIV INFECTION
     Dosage: INTERRUPTED 18-FEB-2005, RESTARTED 23-MAR-2005
     Route: 048
     Dates: start: 20041113
  5. RIBAVIRIN [Concomitant]
     Indication: HEPATITIS C
  6. INTERFERON [Concomitant]
     Indication: HEPATITIS C
  7. AUGMENTIN '125' [Concomitant]
     Dates: start: 20050202
  8. OFLOCET [Concomitant]
     Dates: start: 20050202
  9. BRICANYL [Concomitant]
     Dates: start: 20050202
  10. ATROVENT [Concomitant]
     Dates: start: 20050202

REACTIONS (6)
  - ALANINE AMINOTRANSFERASE INCREASED [None]
  - ASPARTATE AMINOTRANSFERASE INCREASED [None]
  - BLOOD ALKALINE PHOSPHATASE INCREASED [None]
  - LABORATORY TEST ABNORMAL [None]
  - PANCREATITIS [None]
  - PANCREATITIS ACUTE [None]
